FAERS Safety Report 20565980 (Version 1)
Quarter: 2022Q1

REPORT INFORMATION
  Report Type: Spontaneous
  Country: US (occurrence: None)
  Receive Date: 20220307
  Receipt Date: 20220307
  Transmission Date: 20220423
  Serious: Yes (Disabling)
  Sender: FDA-Public Use
  Company Number: None

PATIENT
  Age: 69 Year
  Sex: Female
  Weight: 72 kg

DRUGS (14)
  1. ALENDRONATE [Suspect]
     Active Substance: ALENDRONATE SODIUM
     Indication: Osteoporosis
     Dosage: OTHER QUANTITY : 1 TABLET(S);?
     Route: 048
     Dates: start: 20210825, end: 20220208
  2. LEVOTHYROXINE [Concomitant]
     Active Substance: LEVOTHYROXINE
  3. autologous serum eyedrops [Concomitant]
  4. NASALCROM [Concomitant]
     Active Substance: CROMOLYN SODIUM
  5. MRM nutrition Vegan Bone Maximizer [Concomitant]
  6. Vit D3 800 IU [Concomitant]
  7. Omega 3 2000 MG [Concomitant]
  8. Magnesium Glycinate 240 mg [Concomitant]
  9. Calcium Carbonate 500mg [Concomitant]
  10. Manganese 8mg [Concomitant]
  11. Seleniium 100mcg [Concomitant]
  12. Vit K 120 mcg [Concomitant]
  13. Thorne Basic B complex [Concomitant]
  14. MRM Nutrition Extra Strength Probiotics [Concomitant]

REACTIONS (12)
  - Muscle spasms [None]
  - Muscle spasms [None]
  - Myalgia [None]
  - Muscle tightness [None]
  - Pain in extremity [None]
  - Arthralgia [None]
  - Gait disturbance [None]
  - Muscle spasms [None]
  - Muscle spasms [None]
  - Muscle spasms [None]
  - Muscle spasms [None]
  - Muscle spasms [None]

NARRATIVE: CASE EVENT DATE: 20210829
